FAERS Safety Report 25715471 (Version 1)
Quarter: 2025Q3

REPORT INFORMATION
  Report Type: Spontaneous
  Country: TR (occurrence: TR)
  Receive Date: 20250822
  Receipt Date: 20250822
  Transmission Date: 20251020
  Serious: Yes (Hospitalization)
  Sender: MACLEODS
  Company Number: TR-MLMSERVICE-20250804-PI601222-00125-1

PATIENT

DRUGS (7)
  1. DONEPEZIL [Suspect]
     Active Substance: DONEPEZIL
     Indication: Dementia
     Route: 065
  2. TRIFLUOPERAZINE [Suspect]
     Active Substance: TRIFLUOPERAZINE HYDROCHLORIDE
     Indication: Nausea
     Route: 065
  3. TRIFLUOPERAZINE [Suspect]
     Active Substance: TRIFLUOPERAZINE HYDROCHLORIDE
     Indication: Insomnia
  4. TRIFLUOPERAZINE [Suspect]
     Active Substance: TRIFLUOPERAZINE HYDROCHLORIDE
     Indication: Restlessness
  5. MEDAZEPAM [Concomitant]
     Active Substance: MEDAZEPAM
     Indication: Nausea
     Route: 065
  6. MEDAZEPAM [Concomitant]
     Active Substance: MEDAZEPAM
     Indication: Insomnia
  7. MEDAZEPAM [Concomitant]
     Active Substance: MEDAZEPAM
     Indication: Restlessness

REACTIONS (2)
  - Oesophageal achalasia [Unknown]
  - Condition aggravated [Unknown]
